FAERS Safety Report 10436227 (Version 2)
Quarter: 2015Q2

REPORT INFORMATION
  Report Type: Report from Study
  Country: TR (occurrence: TR)
  Receive Date: 20140908
  Receipt Date: 20150421
  Transmission Date: 20150821
  Serious: Yes (Hospitalization)
  Sender: FDA-Public Use
  Company Number: TR-NOVOPROD-420841

PATIENT
  Sex: Female
  Weight: 3.6 kg

DRUGS (3)
  1. INSULIN DETEMIR FLEXPEN [Suspect]
     Active Substance: INSULIN DETEMIR
     Indication: GESTATIONAL DIABETES
     Dosage: 6 U, QD
     Route: 064
     Dates: start: 20140712, end: 20140811
  2. OLIGOFER FOL [Concomitant]
     Indication: MINERAL SUPPLEMENTATION
     Dosage: 1X2
     Route: 064
     Dates: start: 201407, end: 20140814
  3. NOVORAPID [Suspect]
     Active Substance: INSULIN ASPART
     Indication: GESTATIONAL DIABETES
     Dosage: 26 U, QD
     Route: 064
     Dates: start: 20140712, end: 20140811

REACTIONS (2)
  - Respiratory failure [Recovered/Resolved]
  - Foetal exposure during pregnancy [Recovered/Resolved]

NARRATIVE: CASE EVENT DATE: 20140712
